FAERS Safety Report 4315076-X (Version None)
Quarter: 2004Q1

REPORT INFORMATION
  Report Type: 
  Country: None (occurrence: None)
  Receive Date: 20040310
  Receipt Date: 20040112
  Transmission Date: 20041129
  Serious: Yes (Other)
  Sender: FDA-Public Use
  Company Number: DE-ROCHE-355828

PATIENT
  Sex: Male
  Weight: 69 kg

DRUGS (2)
  1. PEGASYS [Suspect]
     Indication: HEPATITIS C
     Dosage: DOSING REGIMEN REPORTED AS 180 MCG, NO FREQUENCY SPECIFIED.
     Route: 058
     Dates: start: 20040110, end: 20040110
  2. REBETOL [Suspect]
     Indication: HEPATITIS C
     Dosage: DOSING REGIMEN REPORTED AS 1000 MG
     Route: 048
     Dates: start: 20040110, end: 20040110

REACTIONS (6)
  - DYSPNOEA [None]
  - FACE OEDEMA [None]
  - OEDEMA [None]
  - PRURITUS [None]
  - RASH [None]
  - SENSATION OF PRESSURE [None]
